FAERS Safety Report 12778995 (Version 5)
Quarter: 2019Q2

REPORT INFORMATION
  Report Type: Spontaneous
  Country: US (occurrence: US)
  Receive Date: 20160926
  Receipt Date: 20190418
  Transmission Date: 20190711
  Serious: No
  Sender: FDA-Public Use
  Company Number: US-JAZZ-2016-US-011374

PATIENT
  Sex: Female
  Weight: 50.7 kg

DRUGS (14)
  1. XYREM [Suspect]
     Active Substance: SODIUM OXYBATE
     Dosage: DOSE ADJUSTMENTS
     Route: 048
     Dates: start: 201604, end: 2016
  2. XYREM [Suspect]
     Active Substance: SODIUM OXYBATE
     Dosage: 3.75 G, FIRST DOSE
     Route: 048
     Dates: start: 2016
  3. MUCINEX DM [Concomitant]
     Active Substance: DEXTROMETHORPHAN HYDROBROMIDE\GUAIFENESIN
  4. ASCORBIC ACID. [Concomitant]
     Active Substance: ASCORBIC ACID
  5. CEFDINIR. [Concomitant]
     Active Substance: CEFDINIR
  6. LOESTRIN NOS [Concomitant]
     Active Substance: ETHINYL ESTRADIOL\NORETHINDRONE ACETATE
     Indication: CONTRACEPTION
  7. ECHINACEA ANGUSTIFOLIA [Concomitant]
     Active Substance: ECHINACEA ANGUSTIFOLIA
  8. VYVANSE [Concomitant]
     Active Substance: LISDEXAMFETAMINE DIMESYLATE
  9. DICYCLOMINE HYDROCHLORIDE. [Concomitant]
     Active Substance: DICYCLOMINE HYDROCHLORIDE
  10. XYREM [Suspect]
     Active Substance: SODIUM OXYBATE
     Dosage: 3.5 G, SECOND DOSE
     Route: 048
     Dates: start: 2016
  11. ALPRAZOLAM. [Concomitant]
     Active Substance: ALPRAZOLAM
  12. PREDNISONE. [Concomitant]
     Active Substance: PREDNISONE
  13. XYREM [Suspect]
     Active Substance: SODIUM OXYBATE
     Indication: NARCOLEPSY
     Dosage: 2.25 G, BID
     Route: 048
     Dates: start: 201603, end: 201604
  14. TYLENOL EXTRA STRENGTH [Concomitant]
     Active Substance: ACETAMINOPHEN

REACTIONS (3)
  - Stress [Not Recovered/Not Resolved]
  - Anxiety [Not Recovered/Not Resolved]
  - Irritable bowel syndrome [Not Recovered/Not Resolved]

NARRATIVE: CASE EVENT DATE: 2016
